FAERS Safety Report 10205271 (Version 1)
Quarter: 2014Q2

REPORT INFORMATION
  Report Type: Report from Study
  Country: FR (occurrence: FR)
  Receive Date: 20140529
  Receipt Date: 20140529
  Transmission Date: 20141212
  Serious: Yes (Death)
  Sender: FDA-Public Use
  Company Number: FR-PFIZER INC-2014147008

PATIENT
  Age: 74 Year
  Sex: Male
  Weight: 68 kg

DRUGS (1)
  1. INLYTA [Suspect]
     Indication: METASTATIC RENAL CELL CARCINOMA
     Dosage: 5 MG, 1X/DAY
     Dates: start: 20140519, end: 20140526

REACTIONS (4)
  - Death [Fatal]
  - Disease progression [Unknown]
  - Metastatic renal cell carcinoma [Unknown]
  - Off label use [Unknown]
